FAERS Safety Report 25681269 (Version 3)
Quarter: 2025Q4

REPORT INFORMATION
  Report Type: Report from Study
  Country: CA (occurrence: CA)
  Receive Date: 20250814
  Receipt Date: 20251008
  Transmission Date: 20260118
  Serious: Yes (Hospitalization, Other)
  Sender: JOHNSON AND JOHNSON
  Company Number: CA-JNJFOC-20240610635

PATIENT
  Age: 52 Year
  Sex: Male

DRUGS (14)
  1. REMICADE [Suspect]
     Active Substance: INFLIXIMAB
     Indication: Crohn^s disease
     Route: 041
     Dates: start: 20200930
  2. REMICADE [Suspect]
     Active Substance: INFLIXIMAB
     Dosage: LOT EXPIRATION DATE : -MAR-2027
     Route: 041
     Dates: start: 20200930
  3. REMICADE [Suspect]
     Active Substance: INFLIXIMAB
     Dosage: LOT EXPIRATION DATE : -MAR-2027
     Route: 041
     Dates: start: 20200930
  4. TACROLIMUS [Concomitant]
     Active Substance: TACROLIMUS
     Indication: Product used for unknown indication
  5. BASAGLAR [Concomitant]
     Active Substance: INSULIN GLARGINE
     Indication: Product used for unknown indication
  6. PREDNISONE [Concomitant]
     Active Substance: PREDNISONE
     Indication: Product used for unknown indication
  7. CARVEDILOL [Concomitant]
     Active Substance: CARVEDILOL
     Indication: Product used for unknown indication
  8. COLESTIPOL [Concomitant]
     Active Substance: COLESTIPOL
     Indication: Product used for unknown indication
  9. VANCOMYCIN [Concomitant]
     Active Substance: VANCOMYCIN
     Indication: Product used for unknown indication
  10. ZOPICLONE [Concomitant]
     Active Substance: ZOPICLONE
     Indication: Product used for unknown indication
  11. insulin with meals [Concomitant]
     Indication: Product used for unknown indication
  12. NIFEDIPINE [Concomitant]
     Active Substance: NIFEDIPINE
     Indication: Product used for unknown indication
  13. PROPRANOLOL [Concomitant]
     Active Substance: PROPRANOLOL HYDROCHLORIDE
     Indication: Product used for unknown indication
  14. PANTOPRAZOLE [Concomitant]
     Active Substance: PANTOPRAZOLE
     Indication: Product used for unknown indication

REACTIONS (19)
  - Gastrointestinal infection [Recovering/Resolving]
  - Immune thrombocytopenia [Unknown]
  - Platelet count decreased [Not Recovered/Not Resolved]
  - Volume blood decreased [Unknown]
  - Crohn^s disease [Unknown]
  - Hepatic cirrhosis [Unknown]
  - Biliary obstruction [Unknown]
  - Biopsy liver [Unknown]
  - Lymphoid tissue operation [Unknown]
  - International normalised ratio increased [Recovering/Resolving]
  - Oesophageal haemorrhage [Unknown]
  - Rectal haemorrhage [Unknown]
  - Renal disorder [Unknown]
  - Sepsis [Unknown]
  - Liver abscess [Unknown]
  - Malaise [Not Recovered/Not Resolved]
  - Device occlusion [Unknown]
  - Dyspnoea [Unknown]
  - Product dose omission issue [Unknown]

NARRATIVE: CASE EVENT DATE: 20240101
